FAERS Safety Report 20530966 (Version 1)
Quarter: 2022Q1

REPORT INFORMATION
  Report Type: Spontaneous
  Country: US (occurrence: US)
  Receive Date: 20220301
  Receipt Date: 20220301
  Transmission Date: 20220423
  Serious: No
  Sender: FDA-Public Use
  Company Number: US-BAYER-2022A028635

PATIENT
  Age: 85 Year
  Sex: Male

DRUGS (1)
  1. CLARITIN [Suspect]
     Active Substance: LORATADINE
     Indication: Allergy to animal
     Dosage: 1 DF, QD
     Route: 048

REACTIONS (1)
  - Dyspnoea [Unknown]
